FAERS Safety Report 6993301-4 (Version None)
Quarter: 2010Q3

REPORT INFORMATION
  Report Type: 
  Country: None (occurrence: None)
  Receive Date: 20100917
  Receipt Date: 20100513
  Transmission Date: 20110219
  Serious: No
  Sender: FDA-Public Use
  Company Number: US-ASTRAZENECA-2010SE21953

PATIENT
  Age: 40 Year
  Sex: Female
  Weight: 55.8 kg

DRUGS (12)
  1. SEROQUEL XR [Suspect]
     Indication: BIPOLAR I DISORDER
     Route: 048
     Dates: start: 20100201
  2. SEROQUEL XR [Suspect]
     Indication: HALLUCINATION
     Route: 048
     Dates: start: 20100201
  3. SEROQUEL XR [Suspect]
     Route: 048
  4. SEROQUEL XR [Suspect]
     Route: 048
  5. SEROQUEL XR [Suspect]
     Route: 048
     Dates: start: 20100423
  6. SEROQUEL XR [Suspect]
     Route: 048
     Dates: start: 20100423
  7. SEROQUEL XR [Suspect]
     Route: 048
  8. SEROQUEL XR [Suspect]
     Route: 048
  9. AMBIEN [Concomitant]
  10. XANAX [Concomitant]
  11. CYMBALTA [Concomitant]
  12. GLYBURIDE [Concomitant]

REACTIONS (1)
  - AMNESIA [None]
